FAERS Safety Report 19122247 (Version 3)
Quarter: 2021Q2

REPORT INFORMATION
  Report Type: Spontaneous
  Country: IT (occurrence: IT)
  Receive Date: 20210412
  Receipt Date: 20210603
  Transmission Date: 20210717
  Serious: Yes (Death, Other)
  Sender: FDA-Public Use
  Company Number: IT-AMGEN-ITASP2021053998

PATIENT

DRUGS (1)
  1. CARFILZOMIB [Suspect]
     Active Substance: CARFILZOMIB
     Indication: PLASMA CELL MYELOMA
     Dosage: UNK
     Route: 065

REACTIONS (14)
  - Arrhythmia [Unknown]
  - Chest pain [Unknown]
  - Cardiac death [Fatal]
  - Cardiotoxicity [Unknown]
  - Gastrointestinal toxicity [Unknown]
  - Plasma cell myeloma [Unknown]
  - Acute myocardial infarction [Unknown]
  - Presyncope [Unknown]
  - Haematotoxicity [Unknown]
  - Cardiac failure [Unknown]
  - Dyspnoea [Unknown]
  - Syncope [Unknown]
  - Hypertension [Unknown]
  - Nephropathy toxic [Unknown]
